FAERS Safety Report 6913972-8 (Version None)
Quarter: 2010Q3

REPORT INFORMATION
  Report Type: 
  Country: None (occurrence: None)
  Receive Date: 20100809
  Receipt Date: 20100726
  Transmission Date: 20110219
  Serious: Yes (Hospitalization, Other)
  Sender: FDA-Public Use
  Company Number: PHHY2010US49854

PATIENT
  Age: 52 Year
  Sex: Female

DRUGS (17)
  1. METOPROLOL [Suspect]
     Dosage: 200 MG, BID
  2. METOPROLOL [Suspect]
     Dosage: 100 MG, BID
  3. METOPROLOL [Suspect]
     Dosage: 200 MG
  4. METOPROLOL [Suspect]
     Dosage: 100 MG, BID
  5. CLONIDINE [Concomitant]
     Dosage: 0.2 MG, TID
  6. CLONIDINE [Concomitant]
     Dosage: 0.2 MG, QD
     Route: 048
  7. CLONIDINE [Concomitant]
     Dosage: 0.1 MG, 1 DF
     Route: 048
  8. DILTIAZEM [Concomitant]
     Dosage: 180 MG, QD
  9. DILTIAZEM [Concomitant]
     Dosage: 180 MG, 1 DF
     Route: 048
  10. HYDRALAZINE HCL [Concomitant]
     Dosage: 10 MG, TID
  11. HYDRALAZINE HCL [Concomitant]
     Dosage: 10 MG, QD
  12. HYDRALAZINE HCL [Concomitant]
     Dosage: 10 MG, TID
     Route: 042
  13. HYDRALAZINE HCL [Concomitant]
     Dosage: 10 MG, 1 DF
     Route: 048
  14. LOPINAVIR AND RITONAVIR [Concomitant]
     Dosage: 200/50 MG,(2 TABLETS TWICE DAILY)
  15. LABETALOL HCL [Concomitant]
     Dosage: 20 MG, QD
     Route: 042
  16. LISINOPRIL [Concomitant]
     Dosage: 20 MG DAILY
  17. HYDROCHLOROTHIAZIDE [Concomitant]
     Dosage: 25 MG DAILY

REACTIONS (10)
  - ARRHYTHMIA [None]
  - CARDIAC MURMUR [None]
  - CONFUSIONAL STATE [None]
  - DEPRESSED LEVEL OF CONSCIOUSNESS [None]
  - ELECTROCARDIOGRAM P WAVE ABNORMAL [None]
  - ELECTROCARDIOGRAM QRS COMPLEX SHORTENED [None]
  - HYPERTENSION [None]
  - HYPERTENSIVE CRISIS [None]
  - HYPOKINESIA [None]
  - MULTIPLE DRUG OVERDOSE [None]
